FAERS Safety Report 24943796 (Version 1)
Quarter: 2025Q1

REPORT INFORMATION
  Report Type: Report from Study
  Country: JP (occurrence: JP)
  Receive Date: 20250207
  Receipt Date: 20250207
  Transmission Date: 20250409
  Serious: Yes (Disabling)
  Sender: Visiox
  Company Number: JP-SANTENLTD-2019JP005919

PATIENT
  Age: 69 Year
  Sex: Male

DRUGS (1)
  1. OMIDENEPAG ISOPROPYL [Suspect]
     Active Substance: OMIDENEPAG ISOPROPYL
     Indication: Normal tension glaucoma
     Dosage: OU 1 GTT, QD (AT EVENING), OU (2 GTT, QD)
     Route: 047
     Dates: start: 20190703, end: 20200527

REACTIONS (4)
  - Macular hole [Recovered/Resolved with Sequelae]
  - Refraction disorder [Recovering/Resolving]
  - Anterior chamber cell [Recovered/Resolved]
  - Visual acuity tests abnormal [Unknown]

NARRATIVE: CASE EVENT DATE: 20191002
